FAERS Safety Report 6686296-4 (Version None)
Quarter: 2010Q2

REPORT INFORMATION
  Report Type: 
  Country: None (occurrence: None)
  Receive Date: 20100419
  Receipt Date: 20100408
  Transmission Date: 20101027
  Serious: Yes (Hospitalization)
  Sender: FDA-Public Use
  Company Number: FR-PFIZER INC-2010044909

PATIENT
  Age: 24 Year
  Sex: Female

DRUGS (1)
  1. GELDENE [Suspect]
     Indication: ACNE
     Dosage: UNK
     Route: 061
     Dates: start: 20091028, end: 20091102

REACTIONS (1)
  - ABSCESS [None]
